FAERS Safety Report 6248049-0 (Version None)
Quarter: 2009Q2

REPORT INFORMATION
  Report Type: 
  Country: None (occurrence: None)
  Receive Date: 20090626
  Receipt Date: 20090623
  Transmission Date: 20091009
  Serious: Yes (Death)
  Sender: FDA-Public Use
  Company Number: GB-BAUSCH-2009BL003114

PATIENT
  Age: 62 Year
  Sex: Male

DRUGS (1)
  1. DEXAMETHASONE [Suspect]
     Indication: DRUG USE FOR UNKNOWN INDICATION

REACTIONS (3)
  - PEPTIC ULCER PERFORATION [None]
  - POLYMYOSITIS [None]
  - SYSTEMIC LUPUS ERYTHEMATOSUS [None]
